FAERS Safety Report 5118851-7 (Version None)
Quarter: 2006Q3

REPORT INFORMATION
  Report Type: 
  Country: None (occurrence: None)
  Receive Date: 20060927
  Receipt Date: 20060915
  Transmission Date: 20061208
  Serious: Yes (Other)
  Sender: FDA-Public Use
  Company Number: 2006111144

PATIENT
  Age: 39 Year
  Sex: Female
  Weight: 83.9154 kg

DRUGS (2)
  1. GEODON [Suspect]
     Dosage: 40 MG (20 MG, 2 IN 1 D)
     Dates: start: 20060908, end: 20060910
  2. ALL OTHER THERAPEUTIC PRODUCTS (ALL OTHER THERAPEUTIC PRODUCTS) [Concomitant]

REACTIONS (3)
  - DISORIENTATION [None]
  - FEELING DRUNK [None]
  - SUICIDAL IDEATION [None]
